FAERS Safety Report 6628901-4 (Version None)
Quarter: 2010Q1

REPORT INFORMATION
  Report Type: 
  Country: None (occurrence: None)
  Receive Date: 20100225
  Receipt Date: 20090514
  Transmission Date: 20100710
  Serious: Yes (Other)
  Sender: FDA-Public Use
  Company Number: 632809

PATIENT
  Age: 37 Year
  Sex: Female
  Weight: 61.2 kg

DRUGS (10)
  1. ACCUTANE [Suspect]
     Indication: ACNE CYSTIC
     Dosage: ORAL
     Route: 048
     Dates: start: 19920318, end: 20021011
  2. DOXYCYCLINE (DOXYCYCLINE) [Concomitant]
  3. AMITRIPTYLINE HYDROCHLORIDE [Concomitant]
  4. ELEVATED CHOLESTEROL LEVEL/BLOOD CHOLESTEROL INCREASED/MEDDRA 12.0 [Concomitant]
  5. COLD/NASOPHARYNGITIS/MEDDRA 12.0 [Concomitant]
  6. STIFF NECK/MUSCULOSKELETAL STIFFNESS/MEDDRA 12.0 [Concomitant]
  7. STIFF LOWER BACK/MUSCULOSKELETAL STIFFNESS/MEDDRA 12.0 [Concomitant]
  8. CAN'T TAKE DEEP BREATH/DYSPNOEA/MEDDRA 12.0 [Concomitant]
  9. BLURRING OF VISION/VISION BLURRED/MEDDRA 12.0 [Concomitant]
  10. DIZZINESS/DIZZINESS/MEDDRA 12.0 [Concomitant]

REACTIONS (10)
  - BLOOD CHOLESTEROL INCREASED [None]
  - CROHN'S DISEASE [None]
  - DEPRESSION [None]
  - DIZZINESS [None]
  - DYSPNOEA [None]
  - ILEITIS [None]
  - INFLAMMATORY BOWEL DISEASE [None]
  - MUSCULOSKELETAL STIFFNESS [None]
  - NASOPHARYNGITIS [None]
  - VISION BLURRED [None]
